FAERS Safety Report 17173310 (Version 1)
Quarter: 2019Q4

REPORT INFORMATION
  Report Type: Spontaneous
  Country: US (occurrence: US)
  Receive Date: 20191219
  Receipt Date: 20191219
  Transmission Date: 20200122
  Serious: No
  Sender: FDA-Public Use
  Company Number: US-SUNOVION-2019SUN005471

PATIENT
  Sex: Female

DRUGS (5)
  1. LATUDA [Suspect]
     Active Substance: LURASIDONE HYDROCHLORIDE
     Indication: BIPOLAR DISORDER
     Dosage: 60 MG, QD
     Route: 048
  2. LAMOTRIGINE. [Concomitant]
     Active Substance: LAMOTRIGINE
     Dosage: UNK
  3. VALIUM [Concomitant]
     Active Substance: DIAZEPAM
     Indication: ANXIETY
     Dosage: 30 MG
  4. VALIUM [Concomitant]
     Active Substance: DIAZEPAM
     Indication: HEAD TITUBATION
  5. VALIUM [Concomitant]
     Active Substance: DIAZEPAM
     Indication: TREMOR

REACTIONS (4)
  - Crying [Unknown]
  - Decreased appetite [Unknown]
  - Overweight [Unknown]
  - Drug ineffective [Unknown]
